FAERS Safety Report 5754683-4 (Version None)
Quarter: 2008Q2

REPORT INFORMATION
  Report Type: 
  Country: None (occurrence: None)
  Receive Date: 20080530
  Receipt Date: 20080522
  Transmission Date: 20081010
  Serious: Yes (Hospitalization)
  Sender: FDA-Public Use
  Company Number: US-GENENTECH-261589

PATIENT
  Sex: Female

DRUGS (3)
  1. AVASTIN [Suspect]
     Indication: BREAST CANCER METASTATIC
     Dosage: 10 MG/KG, Q2W
     Route: 042
     Dates: start: 20080101
  2. ABRAXANE [Concomitant]
     Indication: DRUG USE FOR UNKNOWN INDICATION
  3. GEMCITABINE [Concomitant]
     Indication: DRUG USE FOR UNKNOWN INDICATION

REACTIONS (1)
  - OEDEMA PERIPHERAL [None]
